FAERS Safety Report 23589240 (Version 5)
Quarter: 2025Q4

REPORT INFORMATION
  Report Type: Spontaneous
  Country: US (occurrence: US)
  Receive Date: 20240303
  Receipt Date: 20251212
  Transmission Date: 20260118
  Serious: No
  Sender: BIOGEN
  Company Number: US-BIOGEN-2024BI01244694

PATIENT
  Age: 46 Year
  Sex: Male
  Weight: 62.9 kg

DRUGS (8)
  1. SKYCLARYS [Suspect]
     Active Substance: OMAVELOXOLONE
     Indication: Friedreich^s ataxia
     Dosage: DOSAGE TEXT:150 MILLIGRAM, QD
     Dates: start: 20230812
  2. SKYCLARYS [Suspect]
     Active Substance: OMAVELOXOLONE
     Dosage: DOSAGE TEXT:150 MILLIGRAM, QD
     Dates: start: 20230812
  3. SKYCLARYS [Suspect]
     Active Substance: OMAVELOXOLONE
     Dosage: DOSAGE TEXT:150 MILLIGRAM, QD
     Dates: start: 20230812
  4. SKYCLARYS [Suspect]
     Active Substance: OMAVELOXOLONE
     Dates: start: 20230705
  5. SKYCLARYS [Suspect]
     Active Substance: OMAVELOXOLONE
     Dates: start: 20240115
  6. TYLENOL [Concomitant]
     Active Substance: ACETAMINOPHEN
     Indication: Product used for unknown indication
  7. HYDROCHLOROTHIAZIDE [Concomitant]
     Active Substance: HYDROCHLOROTHIAZIDE
     Indication: Hypertension
  8. IBUPROFEN [Concomitant]
     Active Substance: IBUPROFEN
     Indication: Pain

REACTIONS (11)
  - Product dose omission issue [Unknown]
  - Weight decreased [Unknown]
  - Hypophagia [Unknown]
  - Nausea [Unknown]
  - Nasopharyngitis [Unknown]
  - Abdominal pain upper [Recovered/Resolved]
  - Pain [Unknown]
  - Abdominal discomfort [Recovered/Resolved]
  - Decreased appetite [Recovered/Resolved]
  - Hepatic enzyme increased [Unknown]
  - Blood cholesterol increased [Unknown]

NARRATIVE: CASE EVENT DATE: 20230101
